FAERS Safety Report 14007366 (Version 2)
Quarter: 2017Q4

REPORT INFORMATION
  Report Type: Report from Study
  Country: JP (occurrence: JP)
  Receive Date: 20170925
  Receipt Date: 20171006
  Transmission Date: 20180321
  Serious: No
  Sender: FDA-Public Use
  Company Number: JP-JT-EVA201702552KERYXP-001

PATIENT
  Age: 92 Year
  Sex: Male
  Weight: 54 kg

DRUGS (19)
  1. AZOSEMIDE [Concomitant]
     Active Substance: AZOSEMIDE
     Dosage: 30 MG, QD
     Route: 048
     Dates: end: 20170303
  2. NESP [Concomitant]
     Active Substance: DARBEPOETIN ALFA
     Indication: NEPHROGENIC ANAEMIA
     Dosage: 60 MICRO-G, UNK
     Route: 042
  3. NESP [Concomitant]
     Active Substance: DARBEPOETIN ALFA
     Dosage: 30 MICRO-G, UNK
     Route: 042
  4. LANSOPRAZOLE. [Concomitant]
     Active Substance: LANSOPRAZOLE
     Indication: HYPERCHLORHYDRIA
     Dosage: 15 MG, QD
     Route: 048
  5. EPADEL-S [Concomitant]
     Active Substance: ICOSAPENT ETHYL
     Dosage: 1800 MG, QD
     Route: 048
     Dates: end: 20170303
  6. PRAVASTATIN NA [Concomitant]
     Active Substance: PRAVASTATIN SODIUM
     Dosage: 5 MG, QD
     Route: 048
     Dates: end: 20170303
  7. RIONA [Suspect]
     Active Substance: FERRIC CITRATE ANHYDROUS
     Indication: HYPERPHOSPHATAEMIA
     Dosage: 250 MG, QD
     Route: 048
     Dates: start: 20161118, end: 20170303
  8. SAMSCA [Concomitant]
     Active Substance: TOLVAPTAN
     Dosage: 15 MG, QD
     Route: 048
     Dates: end: 20170303
  9. AMLODIPINE [Concomitant]
     Active Substance: AMLODIPINE BESYLATE
     Dosage: 5 MG, QD
     Route: 048
  10. SPIRONOLACTONE. [Concomitant]
     Active Substance: SPIRONOLACTONE
     Dosage: 50 MG, QD
     Route: 048
     Dates: end: 20170303
  11. FEBURIC [Concomitant]
     Active Substance: FEBUXOSTAT
     Dosage: 20 MG, QD
     Route: 048
  12. BAYASPIRIN [Concomitant]
     Active Substance: ASPIRIN
     Dosage: 100 MG, QD
     Route: 048
     Dates: end: 20170303
  13. SARPOGRELATE HYDROCHLORIDE [Concomitant]
     Active Substance: SARPOGRELATE HYDROCHLORIDE
     Dosage: 300 MG, QD
     Route: 048
     Dates: end: 20170303
  14. SENNA [Concomitant]
     Active Substance: SENNA LEAF\SENNOSIDES\SENNOSIDES A AND B
     Dosage: 1 G, QD
     Route: 048
  15. OLMETEC [Concomitant]
     Active Substance: OLMESARTAN MEDOXOMIL
     Dosage: 40 MG, QD
     Route: 048
     Dates: end: 20170303
  16. TRAZENTA [Concomitant]
     Active Substance: LINAGLIPTIN
     Dosage: 5 MG, QD
     Route: 048
  17. VOGLIBOSE [Concomitant]
     Active Substance: VOGLIBOSE
     Dosage: 0.9 MG, QD
     Route: 048
     Dates: end: 20170303
  18. URIEF [Concomitant]
     Active Substance: SILODOSIN
     Dosage: 4 MG, QD
     Route: 048
  19. FEXOFENADINE HYDROCHLORIDE. [Concomitant]
     Active Substance: FEXOFENADINE HYDROCHLORIDE
     Dosage: 120 MG, QD
     Route: 048

REACTIONS (1)
  - Decreased appetite [Recovering/Resolving]

NARRATIVE: CASE EVENT DATE: 201702
